FAERS Safety Report 7062129-1 (Version None)
Quarter: 2010Q4

REPORT INFORMATION
  Report Type: 
  Country: None (occurrence: None)
  Receive Date: 20101026
  Receipt Date: 20101015
  Transmission Date: 20110411
  Serious: Yes (Hospitalization)
  Sender: FDA-Public Use
  Company Number: PHHO2010JP14737

PATIENT
  Sex: Female
  Weight: 44 kg

DRUGS (8)
  1. VOLTAREN [Suspect]
     Indication: RHEUMATOID ARTHRITIS
     Dosage: 50 MG, PRN
     Route: 048
     Dates: start: 20100706, end: 20100904
  2. LOXOPROFEN SODIUM [Suspect]
     Indication: RHEUMATOID ARTHRITIS
     Dosage: 120 MG, BID
     Dates: start: 20041228, end: 20100906
  3. CELECOXIB [Suspect]
     Indication: RHEUMATOID ARTHRITIS
     Dosage: 200 MG, BID
     Route: 048
     Dates: start: 20100526, end: 20100906
  4. PREDNISOLONE [Suspect]
     Indication: RHEUMATOID ARTHRITIS
     Dosage: 5 MG, ONCE/SINGLE
     Route: 048
     Dates: start: 20020111, end: 20100907
  5. OLMESARTAN MEDOXOMIL [Concomitant]
  6. BENIDIPINE HYDROCHLORIDE [Concomitant]
  7. FAMOTIDINE [Concomitant]
  8. ISONIAZID [Concomitant]

REACTIONS (33)
  - ABDOMINAL DISCOMFORT [None]
  - ABDOMINAL DISTENSION [None]
  - BACTERIAL INFECTION [None]
  - BACTERIAL TEST POSITIVE [None]
  - CHILLS [None]
  - COUGH [None]
  - DISSEMINATED INTRAVASCULAR COAGULATION [None]
  - DYSPNOEA [None]
  - DYSPNOEA EXERTIONAL [None]
  - FATIGUE [None]
  - FLATULENCE [None]
  - GASTROINTESTINAL SOUNDS ABNORMAL [None]
  - HEPATIC NEOPLASM [None]
  - HEPATITIS [None]
  - HOT FLUSH [None]
  - HYPOAESTHESIA [None]
  - INTERSTITIAL LUNG DISEASE [None]
  - JAUNDICE [None]
  - LIVER DISORDER [None]
  - LUNG DISORDER [None]
  - MALAISE [None]
  - OEDEMA PERIPHERAL [None]
  - PAIN [None]
  - PLEURISY [None]
  - PRODUCTIVE COUGH [None]
  - PULMONARY FUNCTION TEST ABNORMAL [None]
  - PYREXIA [None]
  - RALES [None]
  - RESPIRATORY DISORDER [None]
  - RHEUMATOID ARTHRITIS [None]
  - SENSE OF OPPRESSION [None]
  - SWELLING [None]
  - TREMOR [None]
